FAERS Safety Report 9172516 (Version 1)
Quarter: 2012Q4

REPORT INFORMATION
  Report Type: 
  Country: DE (occurrence: DE)
  Receive Date: 20120911
  Receipt Date: 20120911
  Transmission Date: 20130627
  Serious: Yes (Death, Hospitalization)
  Sender: FDA-Public Use
  Company Number: DE-BAYER-2012-091945

PATIENT
  Age: 47 Year
  Sex: Male

DRUGS (5)
  1. ACETYLSALICYLIC ACID({=100 MG) [Suspect]
     Indication: ANTICOAGULANT THERAPY
     Dosage: Daily dose 100 mg
  2. ACETYLSALICYLIC ACID({=100 MG) [Suspect]
     Indication: ANTICOAGULANT THERAPY
     Dosage: Daily dose 100 mg
  3. WARFARIN [Suspect]
     Indication: ANTICOAGULANT THERAPY
  4. HEPARIN [Concomitant]
     Indication: ANTICOAGULANT THERAPY
  5. ARGATROBAN [Concomitant]

REACTIONS (8)
  - Sepsis [Fatal]
  - Multi-organ failure [Fatal]
  - Post procedural haemorrhage [None]
  - Gastrointestinal ischaemia [None]
  - Ventricular fibrillation [None]
  - Right ventricular failure [None]
  - Pleural effusion [None]
  - Thoracic haemorrhage [Recovered/Resolved]
